FAERS Safety Report 8587703-2 (Version None)
Quarter: 2012Q3

REPORT INFORMATION
  Report Type: 
  Country: None (occurrence: None)
  Receive Date: 20120813
  Receipt Date: 20120808
  Transmission Date: 20120928
  Serious: Yes (Death, Other)
  Sender: FDA-Public Use
  Company Number: PHHY2012US068594

PATIENT
  Age: 61 Year
  Sex: Female

DRUGS (5)
  1. ETOPOSIDE [Concomitant]
  2. CYTARABINE [Suspect]
     Indication: DIFFUSE LARGE B-CELL LYMPHOMA
  3. MELPHALAN HYDROCHLORIDE [Concomitant]
  4. METHOTREXATE [Suspect]
     Indication: DIFFUSE LARGE B-CELL LYMPHOMA
  5. CARMUSTINE [Concomitant]

REACTIONS (11)
  - DIFFUSE LARGE B-CELL LYMPHOMA RECURRENT [None]
  - SENSORIMOTOR DISORDER [None]
  - SKIN PLAQUE [None]
  - EPIDERMAL NECROSIS [None]
  - OEDEMA [None]
  - BLISTER [None]
  - FEBRILE NEUTROPENIA [None]
  - PALMAR-PLANTAR ERYTHRODYSAESTHESIA SYNDROME [None]
  - RASH [None]
  - RASH PUSTULAR [None]
  - MOOD ALTERED [None]
